FAERS Safety Report 11535942 (Version 1)
Quarter: 2015Q3

REPORT INFORMATION
  Report Type: Spontaneous
  Country: US (occurrence: None)
  Receive Date: 20150921
  Receipt Date: 20150921
  Transmission Date: 20151125
  Serious: Yes (Other)
  Sender: FDA-Public Use
  Company Number: None

PATIENT
  Age: 60 Year
  Sex: Female
  Weight: 101.15 kg

DRUGS (10)
  1. TOPAMAX [Concomitant]
     Active Substance: TOPIRAMATE
  2. METOPROLOL [Concomitant]
     Active Substance: METOPROLOL
  3. SERTRALINE [Concomitant]
     Active Substance: SERTRALINE HYDROCHLORIDE
  4. LIGAFLEX [Concomitant]
  5. XARELTO [Suspect]
     Active Substance: RIVAROXABAN
     Indication: PULMONARY EMBOLISM
     Route: 048
  6. PANTAPRAZOLE [Concomitant]
  7. LYRICA [Concomitant]
     Active Substance: PREGABALIN
  8. DESLORATIDINE [Concomitant]
  9. ARMOUR THYROID [Concomitant]
     Active Substance: THYROID, PORCINE\THYROID, UNSPECIFIED
  10. TYLENOL [Concomitant]
     Active Substance: ACETAMINOPHEN

REACTIONS (3)
  - Pulmonary embolism [None]
  - Post procedural complication [None]
  - Headache [None]

NARRATIVE: CASE EVENT DATE: 20150905
